FAERS Safety Report 20694210 (Version 1)
Quarter: 2022Q2

REPORT INFORMATION
  Report Type: Report from Study
  Country: US (occurrence: US)
  Receive Date: 20220411
  Receipt Date: 20220411
  Transmission Date: 20220721
  Serious: Yes (Hospitalization)
  Sender: FDA-Public Use
  Company Number: US-ABBVIE-22K-163-4352200-00

PATIENT
  Sex: Female

DRUGS (3)
  1. DUOPA [Suspect]
     Active Substance: CARBIDOPA\LEVODOPA
     Indication: Product used for unknown indication
     Route: 048
     Dates: start: 20210415
  2. DUOPA [Suspect]
     Active Substance: CARBIDOPA\LEVODOPA
  3. IRON [Suspect]
     Active Substance: IRON
     Indication: Product used for unknown indication
     Route: 065

REACTIONS (5)
  - Blood iron decreased [Unknown]
  - Fall [Unknown]
  - Pain [Unknown]
  - Anaemia [Unknown]
  - Constipation [Unknown]
